FAERS Safety Report 4355542-4 (Version None)
Quarter: 2004Q2

REPORT INFORMATION
  Report Type: 
  Country: None (occurrence: None)
  Receive Date: 20040510
  Receipt Date: 20040428
  Transmission Date: 20050107
  Serious: Yes (Hospitalization)
  Sender: FDA-Public Use
  Company Number: FR-BRISTOL-MYERS SQUIBB COMPANY-12574687

PATIENT
  Age: 2 Month
  Sex: Male
  Weight: 7 kg

DRUGS (2)
  1. MUCOMYST [Suspect]
     Dosage: 100MG/5ML POWDER FOR ORAL SUSPENSION
     Route: 048
     Dates: start: 20031228, end: 20031231
  2. PIVALONE [Concomitant]

REACTIONS (2)
  - BRONCHIOLITIS [None]
  - DYSPNOEA [None]
